FAERS Safety Report 5558791-2 (Version None)
Quarter: 2007Q4

REPORT INFORMATION
  Report Type: 
  Country: None (occurrence: None)
  Receive Date: 20071214
  Receipt Date: 20071206
  Transmission Date: 20080405
  Serious: Yes (Hospitalization, Other)
  Sender: FDA-Public Use
  Company Number: US-PFIZER INC-2007102974

PATIENT
  Sex: Female
  Weight: 61.2 kg

DRUGS (12)
  1. LIPITOR [Suspect]
     Route: 048
  2. LOPRESSOR [Suspect]
  3. POTASSIUM CHLORIDE [Suspect]
  4. PRINIVIL [Concomitant]
  5. DILANTIN [Concomitant]
  6. CALCIUM [Concomitant]
  7. VITAMINS [Concomitant]
  8. FISH OIL [Concomitant]
  9. WARFARIN SODIUM [Concomitant]
  10. ACETYLSALICYLIC ACID SRT [Concomitant]
  11. FUROSEMIDE [Concomitant]
  12. FOSAMAX [Concomitant]

REACTIONS (5)
  - CARDIAC OPERATION [None]
  - CATHETER PLACEMENT [None]
  - DYSPNOEA [None]
  - STENT PLACEMENT [None]
  - TRANSIENT ISCHAEMIC ATTACK [None]
